FAERS Safety Report 18958477 (Version 4)
Quarter: 2021Q4

REPORT INFORMATION
  Report Type: Spontaneous
  Country: US (occurrence: US)
  Receive Date: 20210302
  Receipt Date: 20211006
  Transmission Date: 20220304
  Serious: Yes (Death, Life-Threatening, Hospitalization)
  Sender: FDA-Public Use
  Company Number: US-ULTRAGENYX PHARMACEUTICAL INC.-US-UGNX-21-00031

PATIENT
  Age: 1 Year
  Sex: Female
  Weight: 10 kg

DRUGS (11)
  1. DOJOLVI [Suspect]
     Active Substance: TRIHEPTANOIN
     Indication: Long-chain acyl-coenzyme A dehydrogenase deficiency
     Dosage: 5 ML, EVERY FOUR HOURS (30 ML DAILY), VIA G-TUBE
     Dates: start: 20200827
  2. DOJOLVI [Suspect]
     Active Substance: TRIHEPTANOIN
     Dosage: 6 ML, EVERY FOUR HOURS (36 ML DAILY), VIA G-TUBE
  3. DOJOLVI [Suspect]
     Active Substance: TRIHEPTANOIN
     Dosage: 6.5 ML, EVERY FOUR HOURS (39 ML DAILY), VIA G TUBE
     Dates: start: 20210213
  4. DOJOLVI [Suspect]
     Active Substance: TRIHEPTANOIN
     Dosage: 7 ML, EVERY FOUR HOURS (42 ML DAILY), VIA G-TUBE
     Dates: start: 20210215
  5. DOJOLVI [Suspect]
     Active Substance: TRIHEPTANOIN
     Dosage: 9 ML, EVERY FOUR HOURS (54 ML DAILY), VIA G TUBE
     Dates: start: 20210317, end: 20210427
  6. LEVOCARNITINE [Concomitant]
     Active Substance: LEVOCARNITINE
     Indication: Product used for unknown indication
  7. ENALAPRIL [Concomitant]
     Active Substance: ENALAPRIL
     Indication: Product used for unknown indication
  8. OMEPRAZOLE [Concomitant]
     Active Substance: OMEPRAZOLE
     Indication: Product used for unknown indication
  9. PERIACTIN [Concomitant]
     Active Substance: CYPROHEPTADINE HYDROCHLORIDE
     Indication: Product used for unknown indication
  10. ERYTHROMYCIN [Concomitant]
     Active Substance: ERYTHROMYCIN
     Indication: Product used for unknown indication
  11. FERROUS SULFATE [Concomitant]
     Active Substance: FERROUS SULFATE
     Indication: Product used for unknown indication

REACTIONS (2)
  - Cardiac failure [Fatal]
  - Metabolic disorder [Not Recovered/Not Resolved]

NARRATIVE: CASE EVENT DATE: 20210208
